FAERS Safety Report 26047301 (Version 2)
Quarter: 2025Q4

REPORT INFORMATION
  Report Type: Report from Study
  Country: US (occurrence: US)
  Receive Date: 20251114
  Receipt Date: 20251126
  Transmission Date: 20260118
  Serious: Yes (Other)
  Sender: ACADIA PHARMACEUTICALS
  Company Number: US-ACADIA PHARMACEUTICALS INC.-ACA-2025-PIM-012109

PATIENT
  Sex: Male

DRUGS (2)
  1. NUPLAZID [Suspect]
     Active Substance: PIMAVANSERIN TARTRATE
     Indication: Parkinson^s disease psychosis
     Dosage: 34 MILLIGRAM, QD
     Route: 048
  2. NUPLAZID [Suspect]
     Active Substance: PIMAVANSERIN TARTRATE
     Indication: Parkinson^s disease
     Dosage: 10 MILLIGRAM, QD (TAKE 1 TABLET BY MOUTH DAILY FOR 2 WEEKS,THEN TAKE 2 TABLETS DAILY FOR 2 WEEKS, TH
     Route: 048
     Dates: start: 202511

REACTIONS (4)
  - Hallucination [Unknown]
  - Balance disorder [Unknown]
  - Confusional state [Unknown]
  - Underdose [Unknown]
